FAERS Safety Report 7454946-0 (Version None)
Quarter: 2011Q2

REPORT INFORMATION
  Report Type: 
  Country: None (occurrence: None)
  Receive Date: 20110425
  Receipt Date: 20110408
  Transmission Date: 20111010
  Serious: Yes (Death)
  Sender: FDA-Public Use
  Company Number: 2011SA024810

PATIENT
  Age: 67 Year
  Sex: Male

DRUGS (4)
  1. ASPIRIN [Suspect]
     Indication: PERCUTANEOUS CORONARY INTERVENTION
     Dosage: 325 MILLIGRAM(S)
     Dates: start: 20110221
  2. PLAVIX [Suspect]
     Indication: PERCUTANEOUS CORONARY INTERVENTION
     Dosage: 600 MILLGRAM(S);ONCE;  75 MILLIGRAM(S);DAILY;ORAL
     Route: 048
     Dates: start: 20110221, end: 20110221
  3. PLAVIX [Suspect]
     Indication: PERCUTANEOUS CORONARY INTERVENTION
     Dosage: 600 MILLGRAM(S);ONCE;  75 MILLIGRAM(S);DAILY;ORAL
     Route: 048
     Dates: start: 20110222, end: 20110225
  4. ALL OTHER THERAPEUTIC PRODUCTS [Suspect]
     Indication: PERCUTANEOUS CORONARY INTERVENTION
     Dates: start: 20110221

REACTIONS (4)
  - MUSCULOSKELETAL PAIN [None]
  - CARDIAC ARREST [None]
  - CHEST PAIN [None]
  - SUDDEN CARDIAC DEATH [None]
